FAERS Safety Report 9859530 (Version 1)
Quarter: 2014Q1

REPORT INFORMATION
  Report Type: Spontaneous
  Country: US (occurrence: US)
  Receive Date: 20140131
  Receipt Date: 20140131
  Transmission Date: 20141002
  Serious: Yes (Other)
  Sender: FDA-Public Use
  Company Number: US-WATSON-2014-01350

PATIENT
  Sex: Female

DRUGS (1)
  1. DISOPYRAMIDE (WATSON LABORATORIES) [Suspect]
     Indication: PRODUCT USED FOR UNKNOWN INDICATION
     Dosage: UNK, UNKNOWN
     Route: 065

REACTIONS (7)
  - Glaucoma [Unknown]
  - Hypokinesia [Unknown]
  - Pain [Unknown]
  - Blister [Unknown]
  - Muscular weakness [Unknown]
  - Arthropathy [Unknown]
  - Local swelling [Unknown]
